FAERS Safety Report 8338871-9 (Version None)
Quarter: 2012Q2

REPORT INFORMATION
  Report Type: 
  Country: None (occurrence: None)
  Receive Date: 20120504
  Receipt Date: 20120501
  Transmission Date: 20120825
  Serious: Yes (Other)
  Sender: FDA-Public Use
  Company Number: CA-AMGEN-CANSP2011043563

PATIENT
  Age: 69 Year
  Sex: Female
  Weight: 68.027 kg

DRUGS (3)
  1. PROLIA [Suspect]
     Indication: OSTEOPOROSIS
     Dosage: 60 MG, Q6MO
     Route: 058
     Dates: start: 20110816, end: 20120201
  2. CALCIUM D [Concomitant]
     Route: 048
  3. RAMIPRIL [Concomitant]
     Indication: HYPERTENSION
     Dosage: UNK
     Route: 048
     Dates: start: 20090101

REACTIONS (7)
  - SWOLLEN TONGUE [None]
  - PIGMENTATION DISORDER [None]
  - SKIN PAPILLOMA [None]
  - HYPERTENSION [None]
  - PRURITUS [None]
  - LIP SWELLING [None]
  - ADVERSE EVENT [None]
